FAERS Safety Report 6733842-8 (Version None)
Quarter: 2010Q2

REPORT INFORMATION
  Report Type: 
  Country: None (occurrence: None)
  Receive Date: 20100520
  Receipt Date: 20100519
  Transmission Date: 20101027
  Serious: No
  Sender: FDA-Public Use
  Company Number: US-B.I. PHARMACEUTICALS,INC./RIDGEFIELD-2010-BP-05694BP

PATIENT
  Age: 78 Year
  Sex: Female

DRUGS (6)
  1. AGGRENOX [Suspect]
     Indication: CEREBROVASCULAR ACCIDENT PROPHYLAXIS
     Route: 048
     Dates: start: 20090201
  2. LEXAPRO [Concomitant]
     Indication: DEPRESSION
     Dates: start: 20090201
  3. EVISTA [Concomitant]
     Indication: PROPHYLAXIS
  4. THYROID MEDICATION [Concomitant]
     Indication: HYPOTHYROIDISM
  5. M.V.I. [Concomitant]
     Indication: PROPHYLAXIS
  6. VITAMIN D [Concomitant]
     Indication: PROPHYLAXIS

REACTIONS (2)
  - ATRIAL FIBRILLATION [None]
  - BLOOD CHOLESTEROL INCREASED [None]
